FAERS Safety Report 11540843 (Version 1)
Quarter: 2015Q3

REPORT INFORMATION
  Report Type: Spontaneous
  Country: TH (occurrence: TH)
  Receive Date: 20150923
  Receipt Date: 20150923
  Transmission Date: 20151125
  Serious: Yes (Life-Threatening)
  Sender: FDA-Public Use
  Company Number: TH-BAYER-2015-425983

PATIENT
  Sex: Male

DRUGS (1)
  1. ULTRAVIST [Suspect]
     Active Substance: IOPROMIDE
     Indication: COMPUTERISED TOMOGRAM
     Dosage: UNK
     Route: 042

REACTIONS (4)
  - Loss of consciousness [Unknown]
  - Feeling cold [Unknown]
  - Musculoskeletal stiffness [Unknown]
  - Hypotension [Unknown]

NARRATIVE: CASE EVENT DATE: 20150820
